FAERS Safety Report 10659309 (Version 1)
Quarter: 2014Q4

REPORT INFORMATION
  Report Type: Spontaneous
  Country: US (occurrence: None)
  Receive Date: 20141205
  Receipt Date: 20141205
  Transmission Date: 20150529
  Serious: Yes (Disabling)
  Sender: FDA-Public Use
  Company Number: 1634-POMAL-14045926

PATIENT
  Age: 89 Year
  Sex: Female
  Weight: 60.8 kg

DRUGS (4)
  1. CHLORZOXAZONE. [Concomitant]
     Active Substance: CHLORZOXAZONE
  2. POMALYST [Suspect]
     Active Substance: POMALIDOMIDE
     Indication: PLASMA CELL MYELOMA
     Route: 048
     Dates: start: 20131030
  3. TYLENOL [Concomitant]
     Active Substance: ACETAMINOPHEN
  4. DEXAMETHASONE. [Concomitant]
     Active Substance: DEXAMETHASONE

REACTIONS (1)
  - Plasma cell myeloma [None]
